FAERS Safety Report 4874243-7 (Version None)
Quarter: 2006Q1

REPORT INFORMATION
  Report Type: 
  Country: None (occurrence: None)
  Receive Date: 20060106
  Receipt Date: 20051005
  Transmission Date: 20060701
  Serious: Yes (Death, Hospitalization, Other)
  Sender: FDA-Public Use
  Company Number: US-MERCK-0510USA04549

PATIENT
  Age: 85 Year
  Sex: Female
  Weight: 64 kg

DRUGS (13)
  1. VIOXX [Suspect]
     Indication: ARTHRITIS
     Route: 048
     Dates: start: 20020101, end: 20030101
  2. METOPROLOL [Concomitant]
     Route: 065
  3. SYNTHROID [Concomitant]
     Route: 065
  4. COZAAR [Concomitant]
     Route: 048
  5. ZOCOR [Concomitant]
     Route: 048
  6. FAMOTIDINE [Concomitant]
     Route: 065
  7. LASIX [Concomitant]
     Route: 065
  8. POTASSIUM (UNSPECIFIED) [Concomitant]
     Route: 065
  9. PREDNISONE [Concomitant]
     Route: 065
  10. NIFEDIPINE [Concomitant]
     Route: 065
  11. CALCIUM (UNSPECIFIED) [Concomitant]
     Route: 065
  12. NITROGLYCERIN [Concomitant]
     Route: 065
  13. ASPIRIN [Concomitant]
     Route: 065

REACTIONS (5)
  - CEREBROVASCULAR ACCIDENT [None]
  - CHEST PAIN [None]
  - DEATH [None]
  - GASTRIC ULCER [None]
  - PNEUMONIA [None]
